FAERS Safety Report 7786600-X (Version None)
Quarter: 2011Q3

REPORT INFORMATION
  Report Type: 
  Country: None (occurrence: None)
  Receive Date: 20110929
  Receipt Date: 20110919
  Transmission Date: 20111222
  Serious: Yes (Hospitalization, Other)
  Sender: FDA-Public Use
  Company Number: CA-ELI_LILLY_AND_COMPANY-CA201109005135

PATIENT
  Sex: Female

DRUGS (8)
  1. PROZAC [Concomitant]
  2. SEROQUEL [Concomitant]
  3. RISPERDAL                               /SCH/ [Concomitant]
  4. ZYPREXA [Suspect]
     Indication: SCHIZOAFFECTIVE DISORDER
     Dosage: 10 MG, EACH EVENING
     Dates: start: 20010411
  5. EFFEXOR [Concomitant]
  6. VALPROIC ACID [Concomitant]
  7. BENZTROPINE MESYLATE [Concomitant]
  8. NOZINAN [Concomitant]

REACTIONS (4)
  - RHABDOMYOLYSIS [None]
  - NEUROLEPTIC MALIGNANT SYNDROME [None]
  - NEUROPATHY PERIPHERAL [None]
  - PERONEAL NERVE PALSY [None]
